FAERS Safety Report 19158708 (Version 1)
Quarter: 2021Q2

REPORT INFORMATION
  Report Type: Spontaneous
  Country: US (occurrence: US)
  Receive Date: 20210420
  Receipt Date: 20210420
  Transmission Date: 20210717
  Serious: Yes (Other)
  Sender: FDA-Public Use
  Company Number: US-MACLEODS PHARMACEUTICALS US LTD-MAC2021030844

PATIENT

DRUGS (1)
  1. TRIAMCINOLONE ACETONIDE. [Suspect]
     Active Substance: TRIAMCINOLONE ACETONIDE
     Indication: RETINAL VEIN OCCLUSION
     Dosage: 4 MILLIGRAM, SINGLE INJECTION IN THE LEFT EYE

REACTIONS (2)
  - Necrotising retinitis [Recovering/Resolving]
  - Cytomegalovirus chorioretinitis [Recovering/Resolving]
